FAERS Safety Report 22341399 (Version 2)
Quarter: 2023Q2

REPORT INFORMATION
  Report Type: Spontaneous
  Country: MX (occurrence: None)
  Receive Date: 20230518
  Receipt Date: 20230608
  Transmission Date: 20230722
  Serious: Yes (Other)
  Sender: FDA-Public Use
  Company Number: 2023A108288

PATIENT
  Sex: Female
  Weight: 84 kg

DRUGS (3)
  1. BUDESONIDE\FORMOTEROL FUMARATE DIHYDRATE [Suspect]
     Active Substance: BUDESONIDE\FORMOTEROL FUMARATE DIHYDRATE
     Dosage: 160/4.5 MCG WITH 120 DOSES
     Route: 055
  2. ACETAMINOPHEN [Concomitant]
     Active Substance: ACETAMINOPHEN
     Dosage: UNKNOWN
  3. SODIUM CHLORIDE [Concomitant]
     Active Substance: SODIUM CHLORIDE
     Dosage: UNKNOWN
     Route: 045

REACTIONS (7)
  - Bronchospasm [Unknown]
  - Dyspnoea [Unknown]
  - Cough [Unknown]
  - Malaise [Unknown]
  - Product dose omission issue [Unknown]
  - Device malfunction [Unknown]
  - Product after taste [Unknown]
